FAERS Safety Report 17350791 (Version 8)
Quarter: 2023Q1

REPORT INFORMATION
  Report Type: Report from Study
  Country: IL (occurrence: IL)
  Receive Date: 20200130
  Receipt Date: 20230318
  Transmission Date: 20230418
  Serious: Yes (Death, Hospitalization, Other)
  Sender: FDA-Public Use
  Company Number: IL-ABBVIE-19K-082-2853655-00

PATIENT
  Age: 87 Year
  Sex: Male
  Weight: 85 kg

DRUGS (18)
  1. VENCLEXTA [Suspect]
     Active Substance: VENETOCLAX
     Indication: Chronic lymphocytic leukaemia
     Route: 048
     Dates: start: 20190617, end: 20220414
  2. VENCLEXTA [Suspect]
     Active Substance: VENETOCLAX
     Indication: Chronic lymphocytic leukaemia
     Route: 048
     Dates: start: 20220614, end: 20220718
  3. VENCLEXTA [Suspect]
     Active Substance: VENETOCLAX
     Indication: Chronic lymphocytic leukaemia
     Route: 048
     Dates: start: 20190501, end: 20190507
  4. VENCLEXTA [Suspect]
     Active Substance: VENETOCLAX
     Indication: Chronic lymphocytic leukaemia
     Route: 048
     Dates: start: 20190508, end: 20190515
  5. VENCLEXTA [Suspect]
     Active Substance: VENETOCLAX
     Indication: Chronic lymphocytic leukaemia
     Dosage: 300 MILLIGRAM
     Route: 048
     Dates: start: 20220719, end: 20221228
  6. VENCLEXTA [Suspect]
     Active Substance: VENETOCLAX
     Indication: Chronic lymphocytic leukaemia
     Route: 048
     Dates: start: 20190516, end: 20190521
  7. VENCLEXTA [Suspect]
     Active Substance: VENETOCLAX
     Indication: Chronic lymphocytic leukaemia
     Route: 048
     Dates: start: 20190522, end: 20190528
  8. VENCLEXTA [Suspect]
     Active Substance: VENETOCLAX
     Indication: Chronic lymphocytic leukaemia
     Dosage: DAILY DOSE 300MG, HYDRATION-ORAL ?DAILY DOSE 400MG, HYDRATION-ORAL
     Route: 048
     Dates: start: 20190529, end: 20190602
  9. VENCLEXTA [Suspect]
     Active Substance: VENETOCLAX
     Indication: Chronic lymphocytic leukaemia
     Route: 048
     Dates: start: 20220523, end: 20220613
  10. VENCLEXTA [Suspect]
     Active Substance: VENETOCLAX
     Indication: Chronic lymphocytic leukaemia
     Route: 048
     Dates: start: 20190603, end: 20190616
  11. RITUXIMAB [Suspect]
     Active Substance: RITUXIMAB
     Indication: CD20 antigen positive
     Route: 065
     Dates: start: 20190728, end: 20190728
  12. RITUXIMAB [Suspect]
     Active Substance: RITUXIMAB
     Indication: CD20 antigen positive
     Route: 065
     Dates: start: 20190827, end: 20190827
  13. RITUXIMAB [Suspect]
     Active Substance: RITUXIMAB
     Indication: CD20 antigen positive
     Route: 065
     Dates: start: 20190926, end: 20190926
  14. RITUXIMAB [Suspect]
     Active Substance: RITUXIMAB
     Indication: CD20 antigen positive
     Route: 065
     Dates: start: 20191027, end: 20191027
  15. MAGNOX [Concomitant]
     Indication: Hypomagnesaemia
     Route: 065
     Dates: start: 20190505, end: 20190507
  16. ALLOPURINOL [Concomitant]
     Active Substance: ALLOPURINOL
     Indication: Prophylaxis
     Route: 065
     Dates: start: 20190501
  17. BISOPROLOL FUMARATE [Concomitant]
     Active Substance: BISOPROLOL FUMARATE
     Indication: Hypertension
     Route: 065
     Dates: start: 20141120
  18. RAMIPRIL [Concomitant]
     Active Substance: RAMIPRIL
     Indication: Hypertension
     Route: 065
     Dates: start: 20141120

REACTIONS (7)
  - Pneumonia [Fatal]
  - Malignant melanoma [Recovered/Resolved]
  - Neutropenia [Recovered/Resolved]
  - Lymphocyte count decreased [Not Recovered/Not Resolved]
  - Neutropenia [Unknown]
  - Neutrophil count decreased [Not Recovered/Not Resolved]
  - Disease progression [Unknown]

NARRATIVE: CASE EVENT DATE: 20190617
